FAERS Safety Report 9461682 (Version 1)
Quarter: 2013Q3

REPORT INFORMATION
  Report Type: Spontaneous
  Country: US (occurrence: US)
  Receive Date: 20130816
  Receipt Date: 20130816
  Transmission Date: 20140515
  Serious: Yes (Hospitalization)
  Sender: FDA-Public Use
  Company Number: US-SANOFI-AVENTIS-2013SA077883

PATIENT
  Age: 75 Year
  Sex: Male

DRUGS (9)
  1. WARFARIN SODIUM [Suspect]
     Indication: ANTICOAGULANT THERAPY
     Route: 065
  2. WARFARIN SODIUM [Suspect]
     Indication: ANTICOAGULANT THERAPY
     Route: 065
  3. CLOPIDOGREL BISULFATE [Suspect]
     Indication: ANTICOAGULANT THERAPY
     Route: 065
  4. METOPROLOL [Concomitant]
  5. LISINOPRIL [Concomitant]
  6. HYDROCHLOROTHIAZIDE [Concomitant]
  7. DOXAZOSIN [Concomitant]
  8. DIGOXIN [Concomitant]
  9. SIMVASTATIN [Concomitant]

REACTIONS (10)
  - Compartment syndrome [Unknown]
  - Pain in extremity [Unknown]
  - Local swelling [Unknown]
  - Ecchymosis [Unknown]
  - Paraesthesia [Unknown]
  - Myalgia [Unknown]
  - Radial nerve palsy [Unknown]
  - Joint range of motion decreased [Unknown]
  - Muscular weakness [Unknown]
  - Pulse volume decreased [Unknown]
